FAERS Safety Report 23500486 (Version 1)
Quarter: 2024Q1

REPORT INFORMATION
  Report Type: Spontaneous
  Country: US (occurrence: US)
  Receive Date: 20240208
  Receipt Date: 20240208
  Transmission Date: 20240410
  Serious: Yes (Other)
  Sender: FDA-Public Use
  Company Number: US-BRISTOL-MYERS SQUIBB COMPANY-2024-019869

PATIENT
  Age: 86 Year
  Sex: Female

DRUGS (1)
  1. POMALYST [Suspect]
     Active Substance: POMALIDOMIDE
     Indication: Plasma cell myeloma
     Dosage: TAKE 1 CAPSULE (2 MG TOTAL) BY MOUTH DAILY FOR 21 DAYS, THEN HOLD FOR 7 DAYS. REPEAT EVERY 28 DAYS
     Route: 048
     Dates: start: 20210331

REACTIONS (2)
  - Fatigue [Recovering/Resolving]
  - Upper respiratory tract infection [Recovering/Resolving]
